FAERS Safety Report 5733611-1 (Version None)
Quarter: 2008Q2

REPORT INFORMATION
  Report Type: 
  Country: None (occurrence: None)
  Receive Date: 20080509
  Receipt Date: 20080502
  Transmission Date: 20081010
  Serious: Yes (Hospitalization)
  Sender: FDA-Public Use
  Company Number: AU-ROCHE-562351

PATIENT
  Sex: Female

DRUGS (10)
  1. XELODA [Suspect]
     Route: 065
  2. TRASTUZUMAB [Suspect]
     Route: 065
  3. NAVELBINE [Suspect]
     Route: 048
     Dates: start: 20051018, end: 20051025
  4. ATORVASTATIN [Concomitant]
  5. ESOMEPRAZOLE MAGNESIUM [Concomitant]
     Dosage: REPORTED AS ESOMEPRAZOLE MAGNESIUM TRIHYDRATE.
  6. IRBESARTAN [Concomitant]
  7. METOCLOPRAMIDE [Concomitant]
  8. OXYCODONE HCL [Concomitant]
  9. ACETAMINOPHEN [Concomitant]
  10. TROPISETRON [Concomitant]

REACTIONS (6)
  - CEREBRAL INFARCTION [None]
  - DYSPNOEA [None]
  - FEBRILE NEUTROPENIA [None]
  - HEMIPARESIS [None]
  - NAUSEA [None]
  - VOMITING [None]
